FAERS Safety Report 18856523 (Version 1)
Quarter: 2021Q1

REPORT INFORMATION
  Report Type: Other
  Country: CA (occurrence: CA)
  Receive Date: 20210207
  Receipt Date: 20210207
  Transmission Date: 20210420
  Serious: Yes (Death, Other)
  Sender: FDA-Public Use
  Company Number: CA-CELLTRION INC.-2021CA001285

PATIENT

DRUGS (13)
  1. RITUXIMAB (UNKNOWN) [Suspect]
     Active Substance: RITUXIMAB
     Indication: NEUROMYELITIS OPTICA SPECTRUM DISORDER
     Dosage: 1000 MILLIGRAM
     Route: 042
  2. ACTEMRA [Suspect]
     Active Substance: TOCILIZUMAB
     Indication: NEUROMYELITIS OPTICA SPECTRUM DISORDER
     Dosage: 400 MILLIGRAM, 1 EVERY 1 MONTH
     Route: 042
  3. ROSUVASTATIN. [Concomitant]
     Active Substance: ROSUVASTATIN
     Dosage: 5 MILLIGRAM
     Route: 065
  4. PREDNISONE. [Concomitant]
     Active Substance: PREDNISONE
  5. ASA [Concomitant]
     Active Substance: ASPIRIN
     Dosage: 81 MILLIGRAM
     Route: 065
  6. CLOPIDOGREL BISULFATE. [Concomitant]
     Active Substance: CLOPIDOGREL BISULFATE
     Dosage: 75 MILLIGRAM
     Route: 065
  7. ACTEMRA [Suspect]
     Active Substance: TOCILIZUMAB
     Indication: NEUROMYELITIS OPTICA SPECTRUM DISORDER
     Dosage: 480 MILLIGRAM, 1 EVERY 1 MONTH
     Route: 042
  8. ACETYLSALICYLIC ACID [Concomitant]
     Active Substance: ASPIRIN
     Dosage: 1 EVERY 1 DAY
     Route: 065
  9. AMLODIPINE [Concomitant]
     Active Substance: AMLODIPINE BESYLATE
     Dosage: 2.5 MILLIGRAM
     Route: 065
  10. DIPHENHYDRAMINE HYDROCHLORIDE. [Concomitant]
     Active Substance: DIPHENHYDRAMINE HYDROCHLORIDE
     Dosage: 50 MILLIGRAM
     Route: 048
  11. LEVOTHYROXINE SODIUM. [Concomitant]
     Active Substance: LEVOTHYROXINE SODIUM
  12. ACETAMINOPHEN. [Concomitant]
     Active Substance: ACETAMINOPHEN
     Dosage: 1000 MILLIGRAM
     Route: 048
  13. METHYLPREDNISOLONE SODIUM SUCCINATE. [Suspect]
     Active Substance: METHYLPREDNISOLONE SODIUM SUCCINATE
     Indication: PREMEDICATION
     Dosage: 100 MILLIGRAM
     Route: 042

REACTIONS (35)
  - Somnolence [Fatal]
  - Chest pain [Fatal]
  - Hypoaesthesia [Fatal]
  - Pain [Fatal]
  - Paraesthesia [Fatal]
  - Arterial occlusive disease [Fatal]
  - Gastrointestinal pain [Fatal]
  - Neurological symptom [Fatal]
  - Pain in extremity [Fatal]
  - Off label use [Fatal]
  - Musculoskeletal stiffness [Fatal]
  - Angina pectoris [Fatal]
  - Malaise [Fatal]
  - Chest discomfort [Fatal]
  - Bronchitis [Fatal]
  - Neuralgia [Fatal]
  - Arthralgia [Fatal]
  - Headache [Fatal]
  - Influenza like illness [Fatal]
  - Myalgia [Fatal]
  - Balance disorder [Fatal]
  - Asthenia [Fatal]
  - Death [Fatal]
  - Microvascular coronary artery disease [Fatal]
  - Tooth fracture [Fatal]
  - Abdominal pain [Fatal]
  - Heart rate decreased [Fatal]
  - Intentional product use issue [Fatal]
  - Blood pressure systolic increased [Fatal]
  - Decreased appetite [Fatal]
  - Rheumatoid arthritis [Fatal]
  - Hypertension [Fatal]
  - Nausea [Fatal]
  - Urinary tract infection [Fatal]
  - Weight decreased [Fatal]
